FAERS Safety Report 10336835 (Version 3)
Quarter: 2014Q3

REPORT INFORMATION
  Report Type: Spontaneous
  Country: JP (occurrence: JP)
  Receive Date: 20140723
  Receipt Date: 20140922
  Transmission Date: 20150326
  Serious: Yes (Other)
  Sender: FDA-Public Use
  Company Number: JP-GLAXOSMITHKLINE-B1016627A

PATIENT
  Age: 50 Year
  Sex: Male

DRUGS (8)
  1. LAMICTAL [Suspect]
     Active Substance: LAMOTRIGINE
     Indication: BIPOLAR DISORDER
     Dosage: 200MG TWICE PER DAY
     Route: 048
     Dates: start: 20140314, end: 20140327
  2. ZYPREXA [Concomitant]
     Active Substance: OLANZAPINE
     Dosage: 5MG PER DAY
     Route: 048
     Dates: start: 20140328, end: 20140421
  3. LIMAS [Concomitant]
     Active Substance: LITHIUM CARBONATE
     Dosage: 100MG TWICE PER DAY
     Route: 048
     Dates: start: 20140328, end: 20140421
  4. LAMICTAL [Suspect]
     Active Substance: LAMOTRIGINE
     Indication: BIPOLAR DISORDER
     Route: 048
     Dates: start: 201311
  5. LAMICTAL [Suspect]
     Active Substance: LAMOTRIGINE
     Indication: BIPOLAR DISORDER
     Dosage: 25MG TWICE PER DAY
     Route: 048
     Dates: start: 20140422
  6. LAMICTAL [Suspect]
     Active Substance: LAMOTRIGINE
     Indication: BIPOLAR DISORDER
     Dosage: 50MG TWICE PER DAY
     Route: 048
     Dates: start: 20140328, end: 20140421
  7. TEGRETOL [Concomitant]
     Active Substance: CARBAMAZEPINE
     Route: 048
  8. MEILAX [Concomitant]
     Active Substance: ETHYL LOFLAZEPATE
     Dosage: 2MG PER DAY
     Route: 048
     Dates: start: 20140328, end: 20140421

REACTIONS (2)
  - Encephalopathy [Recovered/Resolved]
  - Nuclear magnetic resonance imaging abnormal [Recovered/Resolved]

NARRATIVE: CASE EVENT DATE: 20140406
